FAERS Safety Report 18622399 (Version 3)
Quarter: 2020Q4

REPORT INFORMATION
  Report Type: Spontaneous
  Country: US (occurrence: US)
  Receive Date: 20201216
  Receipt Date: 20201222
  Transmission Date: 20210114
  Serious: No
  Sender: FDA-Public Use
  Company Number: US-PFIZER INC-2020494823

PATIENT
  Age: 75 Year
  Sex: Male
  Weight: 104.31 kg

DRUGS (2)
  1. IBRANCE [Suspect]
     Active Substance: PALBOCICLIB
     Indication: GASTRIC CANCER
     Dosage: 100 MG, CYCLIC (1 DAILY FOR 14 DAYS, 7 OFF)
     Route: 048
     Dates: start: 202012
  2. IBRANCE [Suspect]
     Active Substance: PALBOCICLIB
     Indication: RETROPERITONEAL CANCER

REACTIONS (1)
  - Off label use [Unknown]
